FAERS Safety Report 6922208-3 (Version None)
Quarter: 2010Q3

REPORT INFORMATION
  Report Type: 
  Country: None (occurrence: None)
  Receive Date: 20100813
  Receipt Date: 20100805
  Transmission Date: 20110219
  Serious: Yes (Other)
  Sender: FDA-Public Use
  Company Number: TN-ABBOTT-10P-160-0662853-00

PATIENT

DRUGS (1)
  1. VALPROATE SODIUM [Suspect]
     Indication: PRODUCT USED FOR UNKNOWN INDICATION
     Dosage: }3 G

REACTIONS (3)
  - DRUG TOXICITY [None]
  - METABOLIC ACIDOSIS [None]
  - OVERDOSE [None]
